FAERS Safety Report 24194351 (Version 2)
Quarter: 2024Q3

REPORT INFORMATION
  Report Type: Report from Study
  Country: US (occurrence: US)
  Receive Date: 20240809
  Receipt Date: 20240830
  Transmission Date: 20241016
  Serious: Yes (Other)
  Sender: ALEXION PHARMACEUTICALS
  Company Number: US-AstraZeneca-CH-00677569A

PATIENT
  Sex: Female
  Weight: 138.6 kg

DRUGS (28)
  1. ULTOMIRIS [Suspect]
     Active Substance: RAVULIZUMAB-CWVZ
     Indication: Myasthenia gravis
     Dosage: UNK
     Route: 065
  2. ACETAMINOPHEN [Concomitant]
     Active Substance: ACETAMINOPHEN
     Indication: Pain
     Dosage: 325 MILLIGRAM, Q4H, PRN
     Route: 048
     Dates: start: 20240124
  3. ACETAMINOPHEN [Concomitant]
     Active Substance: ACETAMINOPHEN
     Dosage: 650 MILLIGRAM, Q4H, PRN
     Route: 048
     Dates: start: 20240816
  4. AMLODIPINE BESYLATE [Concomitant]
     Active Substance: AMLODIPINE BESYLATE
     Indication: Essential hypertension
     Dosage: 5 MILLIGRAM, QD
     Route: 048
     Dates: start: 20240125
  5. CHOLECALCIFEROL [Concomitant]
     Active Substance: CHOLECALCIFEROL
     Indication: Vitamin D deficiency
     Dosage: 25 MICROGRAM, QD
     Route: 048
     Dates: start: 20240125
  6. CLARITIN [Concomitant]
     Active Substance: LORATADINE
     Indication: Hypersensitivity
     Dosage: 5 MILLIGRAM, QD
     Route: 048
     Dates: start: 20240125
  7. CYMBALTA [Concomitant]
     Active Substance: DULOXETINE HYDROCHLORIDE
     Indication: Depression
     Dosage: 60 MILLIGRAM, QD
     Route: 048
     Dates: start: 20240124
  8. DOCUSOFT [Concomitant]
     Indication: Constipation
     Dosage: 100 MILLIGRAM, QD
     Route: 048
     Dates: start: 20240125
  9. Dulcolax [Concomitant]
     Indication: Constipation
     Dosage: 10 MILLIGRAM, QD, PRN
     Route: 054
     Dates: start: 20240124
  10. FERROUS SULFATE [Concomitant]
     Active Substance: FERROUS SULFATE
     Indication: Anaemia
     Dosage: 325 MILLIGRAM, QD
     Route: 048
     Dates: start: 20240124
  11. FLEET ENEMA [Concomitant]
     Active Substance: SODIUM PHOSPHATE, DIBASIC\SODIUM PHOSPHATE, MONOBASIC
     Indication: Constipation
     Dosage: 118 MILLILITER, PRN
     Route: 054
     Dates: start: 20240124
  12. GUAIFENESIN [Concomitant]
     Active Substance: GUAIFENESIN
     Indication: Cough
     Dosage: 200 MILLIGRAM, Q4H, PRN
     Route: 048
     Dates: start: 20240124
  13. ACETAMINOPHEN\HYDROCODONE [Concomitant]
     Active Substance: ACETAMINOPHEN\HYDROCODONE
     Indication: Pain
     Dosage: 5-325 MILLIGRAM, Q8H , PRN
     Route: 048
     Dates: start: 20240124
  14. MELATONIN [Concomitant]
     Active Substance: MELATONIN
     Indication: Insomnia
     Dosage: 3 MILLIGRAM, BED TIME
     Route: 048
     Dates: start: 20240124
  15. MELATONIN [Concomitant]
     Active Substance: MELATONIN
     Dosage: 5 MILLIGRAM, BED TIME
     Route: 048
     Dates: start: 20240124
  16. MILK OF MAGNESIA [Concomitant]
     Active Substance: MAGNESIUM HYDROXIDE
     Indication: Constipation
     Dosage: 30 MILLILITER, PRN, AT BED TIME
     Route: 048
     Dates: start: 20240124
  17. MINERALS\VITAMINS [Concomitant]
     Active Substance: MINERALS\VITAMINS
     Indication: Supplementation therapy
     Dosage: UNK, QD
     Route: 048
     Dates: start: 20240125
  18. NALOXONE [Concomitant]
     Active Substance: NALOXONE
     Indication: Dyspnoea
     Dosage: 4 MILLIGRAM, PRN
     Route: 045
     Dates: start: 20240715
  19. OMEPRAZOLE [Concomitant]
     Active Substance: OMEPRAZOLE
     Indication: Gastrooesophageal reflux disease
     Dosage: 20 MILLIGRAM, QD
     Route: 048
     Dates: start: 20240125
  20. ONDANSETRON [Concomitant]
     Active Substance: ONDANSETRON
     Indication: Nausea
     Dosage: 4 MILLIGRAM, Q6H, PRN
     Route: 048
     Dates: start: 20240124
  21. ORAJEL [Concomitant]
     Active Substance: ALLANTOIN\BENZOCAINE\CAMPHOR (NATURAL)\DIMETHICONE\MENTHOL
     Indication: Oral pain
     Dosage: UNK, Q8H
     Route: 061
     Dates: start: 20240621
  22. POTASSIUM CHLORIDE [Concomitant]
     Active Substance: POTASSIUM CHLORIDE
     Indication: Supplementation therapy
     Dosage: 20 MILLIEQUIVALENT, QD
     Route: 048
     Dates: start: 20240125
  23. PREDNISONE [Concomitant]
     Active Substance: PREDNISONE
     Indication: Myasthenia gravis
     Dosage: 10 MILLIGRAM, QD
     Route: 048
     Dates: start: 20240125
  24. ProMod [Concomitant]
     Indication: Supplementation therapy
     Dosage: 30 MILLILITER, QD
     Route: 048
     Dates: start: 20240125
  25. PYRIDOSTIGMINE BROMIDE [Concomitant]
     Active Substance: PYRIDOSTIGMINE BROMIDE
     Indication: Myasthenia gravis
     Dosage: 120 MILLIGRAM
     Route: 048
     Dates: start: 20240124
  26. REFRESH TEARS [Concomitant]
     Active Substance: CARBOXYMETHYLCELLULOSE SODIUM
     Indication: Dry eye
     Dosage: UNK, BID
     Route: 047
     Dates: start: 20240124
  27. DOCUSATE SODIUM\SENNOSIDES A AND B [Concomitant]
     Active Substance: DOCUSATE SODIUM\SENNOSIDES A AND B
     Indication: Constipation
     Dosage: 8.6-50 MILLIGRAM, QD
     Route: 048
     Dates: start: 20240125
  28. MEDICAL FOOD [Concomitant]
     Active Substance: MEDICAL FOOD
     Indication: Urinary tract infection
     Dosage: 30 MILLIGRAM, QD
     Route: 048
     Dates: start: 20240125

REACTIONS (43)
  - Urinary tract infection [Not Recovered/Not Resolved]
  - Osteoarthritis [Unknown]
  - Vascular dementia [Unknown]
  - Dementia [Unknown]
  - Femur fracture [Unknown]
  - Dementia Alzheimer^s type [Unknown]
  - Major depression [Unknown]
  - Weight decreased [Unknown]
  - Oral candidiasis [Unknown]
  - Fungal infection [Unknown]
  - Mouth ulceration [Unknown]
  - Blood 25-hydroxycholecalciferol decreased [Unknown]
  - Anxiety disorder [Unknown]
  - Psychotic disorder [Unknown]
  - Affective disorder [Unknown]
  - Cardiac murmur [Unknown]
  - Oedema [Unknown]
  - Osteoporosis [Unknown]
  - Asthenia [Unknown]
  - Dysphagia [Unknown]
  - Muscular weakness [Unknown]
  - Mobility decreased [Unknown]
  - Gait disturbance [Unknown]
  - Muscle injury [Unknown]
  - Tendon injury [Unknown]
  - Coordination abnormal [Unknown]
  - Bacterial infection [Unknown]
  - Tibia fracture [Unknown]
  - Peripheral vascular disorder [Unknown]
  - Dermatophytosis of nail [Unknown]
  - Pain [Unknown]
  - Essential hypertension [Unknown]
  - Vitamin D deficiency [Unknown]
  - Constipation [Unknown]
  - Constipation [Unknown]
  - Anaemia [Unknown]
  - Cough [Unknown]
  - Insomnia [Unknown]
  - Dyspnoea [Unknown]
  - Gastrooesophageal reflux disease [Unknown]
  - Nausea [Unknown]
  - Oral pain [Unknown]
  - Dry eye [Unknown]
